FAERS Safety Report 5961985-5 (Version None)
Quarter: 2008Q4

REPORT INFORMATION
  Report Type: 
  Country: None (occurrence: None)
  Receive Date: 20081121
  Receipt Date: 20081118
  Transmission Date: 20090506
  Serious: Yes (Hospitalization)
  Sender: FDA-Public Use
  Company Number: CA-ABBOTT-08P-028-0488707-00

PATIENT
  Age: 45 Year
  Sex: Female

DRUGS (11)
  1. WARFARIN SODIUM [Suspect]
     Indication: DEEP VEIN THROMBOSIS
     Dosage: NOT REPORTED
     Dates: start: 20060201, end: 20060801
  2. WARFARIN SODIUM [Suspect]
     Dates: start: 20061201
  3. WARFARIN SODIUM [Suspect]
  4. WARFARIN SODIUM [Suspect]
  5. PREDNISONE TAB [Suspect]
     Indication: LEUKOCYTOCLASTIC VASCULITIS
     Dosage: NOT REPORTED
     Dates: start: 20070515, end: 20070520
  6. PREDNISONE TAB [Suspect]
     Route: 048
  7. PREDNISONE TAB [Suspect]
     Route: 048
  8. PREDNISONE TAB [Suspect]
     Route: 048
  9. CEFAZOLIN [Concomitant]
     Indication: DRUG USE FOR UNKNOWN INDICATION
     Dosage: NOT REPORTED
     Dates: start: 20070507
  10. HEPARIN [Concomitant]
     Indication: DRUG USE FOR UNKNOWN INDICATION
     Dosage: NOT REPORTED
     Dates: end: 20070510
  11. CEPHALEXIN MONOHYDRATE [Concomitant]
     Indication: CELLULITIS
     Dosage: NOT REPORTED
     Dates: start: 20070512

REACTIONS (2)
  - DRUG INTERACTION [None]
  - INTERNATIONAL NORMALISED RATIO INCREASED [None]
